FAERS Safety Report 6461716-9 (Version None)
Quarter: 2009Q4

REPORT INFORMATION
  Report Type: 
  Country: None (occurrence: None)
  Receive Date: 20091130
  Receipt Date: 20091125
  Transmission Date: 20100525
  Serious: Yes (Other)
  Sender: FDA-Public Use
  Company Number: GB-BRISTOL-MYERS SQUIBB COMPANY-14871768

PATIENT
  Age: 32 Year
  Sex: Male

DRUGS (5)
  1. CISPLATIN [Suspect]
     Indication: TERATOMA
     Dates: start: 20071015, end: 20071017
  2. ETOPOSIDE [Suspect]
     Indication: TERATOMA
     Dates: start: 20071015, end: 20071017
  3. BLEOMYCIN SULFATE [Suspect]
     Indication: TERATOMA
     Dates: start: 20071015, end: 20071017
  4. DEXAMETHASONE TAB [Concomitant]
  5. ONDANSETRON [Concomitant]

REACTIONS (1)
  - CONVULSION [None]
